FAERS Safety Report 4755643-2 (Version None)
Quarter: 2005Q3

REPORT INFORMATION
  Report Type: 
  Country: None (occurrence: None)
  Receive Date: 20050830
  Receipt Date: 20050611
  Transmission Date: 20060218
  Serious: No
  Sender: FDA-Public Use
  Company Number: US-BRISTOL-MYERS SQUIBB COMPANY-13000823

PATIENT
  Age: 46 Year
  Sex: Female
  Weight: 54 kg

DRUGS (4)
  1. ABILIFY [Suspect]
     Indication: ANXIETY
     Route: 048
  2. ABILIFY [Suspect]
     Indication: POST-TRAUMATIC STRESS DISORDER
     Route: 048
  3. DILAUDID [Concomitant]
  4. ACCUPRIL [Concomitant]

REACTIONS (1)
  - DIZZINESS [None]
